FAERS Safety Report 9295149 (Version 1)
Quarter: 2013Q2

REPORT INFORMATION
  Report Type: Spontaneous
  Country: FI (occurrence: FI)
  Receive Date: 20130517
  Receipt Date: 20130517
  Transmission Date: 20140414
  Serious: No
  Sender: FDA-Public Use
  Company Number: PHHY2013FI048872

PATIENT
  Age: 24 Year
  Sex: Female

DRUGS (1)
  1. LEPONEX [Suspect]
     Dosage: UNK
     Dates: end: 20130416

REACTIONS (1)
  - Neutrophil count decreased [Not Recovered/Not Resolved]
